FAERS Safety Report 12764987 (Version 1)
Quarter: 2016Q3

REPORT INFORMATION
  Report Type: Spontaneous
  Country: US (occurrence: US)
  Receive Date: 20160921
  Receipt Date: 20160921
  Transmission Date: 20161109
  Serious: Yes (Hospitalization)
  Sender: FDA-Public Use
  Company Number: US-ASTRAZENECA-2016SE97805

PATIENT
  Age: 25023 Day
  Sex: Male
  Weight: 83.9 kg

DRUGS (3)
  1. INSULIN [Concomitant]
     Active Substance: INSULIN NOS
  2. COUMADIN [Concomitant]
     Active Substance: WARFARIN SODIUM
     Indication: CARDIAC PACEMAKER INSERTION
     Route: 048
     Dates: start: 20160704
  3. BRILINTA [Suspect]
     Active Substance: TICAGRELOR
     Indication: STENT PLACEMENT
     Route: 048
     Dates: start: 20160624

REACTIONS (8)
  - Product use issue [Unknown]
  - Haemorrhage [Unknown]
  - Memory impairment [Unknown]
  - Gait disturbance [Unknown]
  - International normalised ratio fluctuation [Unknown]
  - Cerebrovascular accident [Unknown]
  - Visual impairment [Unknown]
  - Contusion [Unknown]

NARRATIVE: CASE EVENT DATE: 20160913
